FAERS Safety Report 9002414 (Version 23)
Quarter: 2016Q3

REPORT INFORMATION
  Report Type: Report from Study
  Country: CA (occurrence: CA)
  Receive Date: 20130107
  Receipt Date: 20160923
  Transmission Date: 20161109
  Serious: Yes (Other)
  Sender: FDA-Public Use
  Company Number: PHHY2009CA51459

PATIENT
  Age: 67 Year
  Sex: Male

DRUGS (5)
  1. GLEEVEC [Suspect]
     Active Substance: IMATINIB MESYLATE
     Indication: CHRONIC MYELOID LEUKAEMIA
     Dosage: 400 MG, BID
     Route: 048
     Dates: start: 20090901
  2. HYDROCHLOROTHIAZIDE. [Suspect]
     Active Substance: HYDROCHLOROTHIAZIDE
     Indication: PRODUCT USED FOR UNKNOWN INDICATION
     Dosage: UNK
     Route: 065
  3. AMLODIPINE [Concomitant]
     Active Substance: AMLODIPINE BESYLATE
     Indication: PRODUCT USED FOR UNKNOWN INDICATION
     Dosage: 10 MG, UNK
     Route: 065
  4. NORVASC [Concomitant]
     Active Substance: AMLODIPINE BESYLATE
     Indication: PRODUCT USED FOR UNKNOWN INDICATION
     Dosage: UNK
     Route: 065
  5. WATER PILLS [Concomitant]
     Active Substance: UNSPECIFIED INGREDIENT
     Indication: PRODUCT USED FOR UNKNOWN INDICATION
     Route: 065

REACTIONS (57)
  - Abdominal discomfort [Unknown]
  - Diarrhoea [Recovering/Resolving]
  - Pain in extremity [Recovering/Resolving]
  - Malaise [Unknown]
  - Arthralgia [Unknown]
  - Localised infection [Recovering/Resolving]
  - Eye pain [Unknown]
  - Drug ineffective [Unknown]
  - Bowel movement irregularity [Unknown]
  - Red blood cell count decreased [Unknown]
  - Abscess limb [Recovering/Resolving]
  - Testicular disorder [Unknown]
  - Dyspepsia [Unknown]
  - Muscle spasms [Recovering/Resolving]
  - Pyrexia [Recovering/Resolving]
  - Rash [Unknown]
  - Blood creatinine increased [Unknown]
  - Weight decreased [Unknown]
  - Peripheral swelling [Recovering/Resolving]
  - Oedema [Unknown]
  - Alopecia [Unknown]
  - Eye oedema [Unknown]
  - Fatigue [Unknown]
  - Blood pressure decreased [Unknown]
  - Bone marrow failure [Unknown]
  - Fall [Unknown]
  - Limb injury [Recovering/Resolving]
  - Skin exfoliation [Unknown]
  - Hyperhidrosis [Unknown]
  - Blood potassium decreased [Unknown]
  - Incision site swelling [Unknown]
  - Wound complication [Unknown]
  - Arthritis [Unknown]
  - Dyspnoea [Unknown]
  - Nasopharyngitis [Unknown]
  - Bone pain [Unknown]
  - Night sweats [Unknown]
  - Blood lactate dehydrogenase increased [Unknown]
  - Prostatomegaly [Unknown]
  - Localised infection [Recovered/Resolved]
  - Sunburn [Unknown]
  - Joint swelling [Unknown]
  - Musculoskeletal stiffness [Unknown]
  - Eye haemorrhage [Unknown]
  - Weight increased [Recovering/Resolving]
  - Eye swelling [Unknown]
  - Mean cell volume increased [Unknown]
  - Lymphocyte count decreased [Unknown]
  - Nausea [Unknown]
  - Dysphonia [Unknown]
  - Swelling [Unknown]
  - Fluid retention [Unknown]
  - Urticaria [Unknown]
  - Erythema [Recovering/Resolving]
  - Chest pain [Unknown]
  - Myalgia [Unknown]
  - Renal impairment [Unknown]

NARRATIVE: CASE EVENT DATE: 20140912
